FAERS Safety Report 14299825 (Version 2)
Quarter: 2017Q4

REPORT INFORMATION
  Report Type: Spontaneous
  Country: PL (occurrence: PL)
  Receive Date: 20171219
  Receipt Date: 20171219
  Transmission Date: 20180321
  Serious: Yes (Hospitalization)
  Sender: FDA-Public Use
  Company Number: PL-CIPLA LTD.-2017PL22941

PATIENT

DRUGS (2)
  1. TOPIRAMATE. [Suspect]
     Active Substance: TOPIRAMATE
     Indication: EPILEPSY
     Dosage: 400 MG, DAY
     Route: 065
  2. TOPIRAMATE. [Suspect]
     Active Substance: TOPIRAMATE
     Dosage: 4000 MG, UNK (72.7 MG/KG)
     Route: 048

REACTIONS (5)
  - Mydriasis [Recovered/Resolved]
  - Somnolence [Recovered/Resolved]
  - Overdose [Unknown]
  - Vertigo [Recovered/Resolved]
  - Metabolic acidosis [Recovered/Resolved]
